FAERS Safety Report 5460059-X (Version None)
Quarter: 2007Q3

REPORT INFORMATION
  Report Type: 
  Country: None (occurrence: None)
  Receive Date: 20070919
  Receipt Date: 20070726
  Transmission Date: 20080115
  Serious: Yes (Other)
  Sender: FDA-Public Use
  Company Number: US-PURDUE-USA_2007_0029003

PATIENT
  Sex: Female

DRUGS (3)
  1. OXYCONTIN [Suspect]
     Indication: NECK PAIN
     Dosage: UNK MG, UNK
     Route: 048
     Dates: start: 20010101, end: 20070101
  2. SOMA [Concomitant]
     Indication: PAIN
     Dosage: UNK MG, UNK
     Route: 048
  3. VICODIN [Concomitant]
     Indication: PAIN
     Dosage: UNK MG, UNK
     Route: 048

REACTIONS (11)
  - AGGRESSION [None]
  - ANXIETY [None]
  - DEPRESSION [None]
  - DRUG DEPENDENCE [None]
  - DRUG WITHDRAWAL SYNDROME [None]
  - MALAISE [None]
  - MENTAL IMPAIRMENT [None]
  - MOOD SWINGS [None]
  - PANIC DISORDER [None]
  - SOCIAL AVOIDANT BEHAVIOUR [None]
  - SUICIDAL IDEATION [None]
